FAERS Safety Report 9875841 (Version 1)
Quarter: 2013Q2

REPORT INFORMATION
  Report Type: Spontaneous
  Country: US (occurrence: None)
  Receive Date: 20121128
  Receipt Date: 20121128
  Transmission Date: 20140414
  Serious: Yes (Other)
  Sender: FDA-Public Use
  Company Number: TRP_07044_2010

PATIENT
  Age: 53 Year
  Sex: Female
  Weight: 64.41 kg

DRUGS (2)
  1. INTERFERON ALFACON-1 (INTERFERON ALFACON-1) [Suspect]
     Indication: HEPATITIS C
     Route: 058
     Dates: start: 20100604
  2. RIBAVIRIN (RIBAVIRIN) [Suspect]
     Indication: HEPATITIS C
     Route: 048
     Dates: start: 20100604

REACTIONS (3)
  - Headache [None]
  - Pyrexia [None]
  - Chills [None]
